FAERS Safety Report 19518461 (Version 1)
Quarter: 2021Q3

REPORT INFORMATION
  Report Type: Spontaneous
  Country: CA (occurrence: CA)
  Receive Date: 20210712
  Receipt Date: 20210712
  Transmission Date: 20211014
  Serious: Yes (Life-Threatening, Hospitalization, Other)
  Sender: FDA-Public Use
  Company Number: CA-SA-2021SA220504

PATIENT
  Age: 39 Year
  Sex: Female

DRUGS (11)
  1. NAPROXEN. [Concomitant]
     Active Substance: NAPROXEN
  2. ONDANSETRON [Concomitant]
     Active Substance: ONDANSETRON
  3. PROCHLORPERAZINE. [Concomitant]
     Active Substance: PROCHLORPERAZINE
  4. DEXAMETHASONE. [Concomitant]
     Active Substance: DEXAMETHASONE
  5. FILGRASTIM [Concomitant]
     Active Substance: FILGRASTIM
  6. FLECAINIDE [Concomitant]
     Active Substance: FLECAINIDE
  7. TRASTUZUMAB. [Concomitant]
     Active Substance: TRASTUZUMAB
  8. ATIVAN [Concomitant]
     Active Substance: LORAZEPAM
  9. LORAZEPAM. [Concomitant]
     Active Substance: LORAZEPAM
  10. TAXOTERE [Suspect]
     Active Substance: DOCETAXEL
     Indication: BREAST CANCER FEMALE
     Dosage: 143 MG
  11. DILTIAZEM. [Concomitant]
     Active Substance: DILTIAZEM

REACTIONS (4)
  - Intestinal resection [Recovered/Resolved]
  - Septic shock [Recovered/Resolved]
  - Neutropenic colitis [Recovered/Resolved]
  - Weight decreased [Recovered/Resolved]
